FAERS Safety Report 4733745-4 (Version None)
Quarter: 2005Q3

REPORT INFORMATION
  Report Type: 
  Country: None (occurrence: None)
  Receive Date: 20050729
  Receipt Date: 20050526
  Transmission Date: 20060218
  Serious: No
  Sender: FDA-Public Use
  Company Number: MK200505-0360-1

PATIENT
  Age: 70 Year
  Sex: Female

DRUGS (1)
  1. NEUTROSPEC [Suspect]
     Indication: OSTEOMYELITIS
     Dosage: 20 MCI, ONE TIME, IV
     Route: 042
     Dates: start: 20050429, end: 20050429

REACTIONS (2)
  - DEPRESSED LEVEL OF CONSCIOUSNESS [None]
  - MUSCULOSKELETAL STIFFNESS [None]
